FAERS Safety Report 18681833 (Version 3)
Quarter: 2021Q1

REPORT INFORMATION
  Report Type: Report from Study
  Country: US (occurrence: US)
  Receive Date: 20201229
  Receipt Date: 20210310
  Transmission Date: 20210419
  Serious: Yes (Other)
  Sender: FDA-Public Use
  Company Number: US-MALLINCKRODT-T201901511

PATIENT
  Age: 48 Year
  Sex: Male

DRUGS (3)
  1. REPOSITORY CORTICOTROPIN INJECTION [Suspect]
     Active Substance: CORTICOTROPIN
     Indication: POLYMYOSITIS
     Dosage: 1 MILLILITER (80 UNITS), TWICE A WEEK (THURSDAY AND SATURDAY)
     Route: 058
     Dates: start: 20180421
  2. RITUXAN [Concomitant]
     Active Substance: RITUXIMAB
     Indication: PRODUCT USED FOR UNKNOWN INDICATION
     Dosage: INFUSION 2?3 X YEAR
     Route: 065
  3. PREDNISONE. [Suspect]
     Active Substance: PREDNISONE
     Indication: INFLAMMATION
     Dosage: UNK
     Route: 065

REACTIONS (21)
  - Polymyositis [Unknown]
  - Asthenia [Unknown]
  - Wrong technique in product usage process [Not Recovered/Not Resolved]
  - Inappropriate schedule of product administration [Unknown]
  - Sensitivity to weather change [Unknown]
  - Myalgia [Recovering/Resolving]
  - Memory impairment [Unknown]
  - Weight increased [Not Recovered/Not Resolved]
  - Product dose omission issue [Recovered/Resolved]
  - Diabetes mellitus [Not Recovered/Not Resolved]
  - Muscle spasms [Not Recovered/Not Resolved]
  - Visual field defect [Unknown]
  - Condition aggravated [Unknown]
  - Nausea [Not Recovered/Not Resolved]
  - Hunger [Unknown]
  - Dizziness [Recovering/Resolving]
  - Appetite disorder [Unknown]
  - Therapeutic product effect incomplete [Unknown]
  - Fatigue [Recovering/Resolving]
  - Night sweats [Unknown]
  - Hypertension [Unknown]

NARRATIVE: CASE EVENT DATE: 201911
